FAERS Safety Report 8599542 (Version 2)
Quarter: 2012Q4

REPORT INFORMATION
  Report Type: 
  Country: AR (occurrence: AR)
  Receive Date: 20120605
  Receipt Date: 20120913
  Transmission Date: 20130627
  Serious: Yes (Other)
  Sender: FDA-Public Use
  Company Number: AR-ROCHE-1074645

PATIENT
  Age: 74 None
  Sex: Female

DRUGS (1)
  1. LUCENTIS [Suspect]
     Indication: MACULOPATHY
     Dosage: 1 ampoule
     Route: 050
     Dates: start: 2010

REACTIONS (11)
  - Cataract [Unknown]
  - Retinal injury [Not Recovered/Not Resolved]
  - Visual acuity reduced [Recovering/Resolving]
  - Lacrimation increased [Not Recovered/Not Resolved]
  - Vision blurred [Recovering/Resolving]
  - Asthenopia [Not Recovered/Not Resolved]
  - Eye swelling [Not Recovered/Not Resolved]
  - Foreign body sensation in eyes [Unknown]
  - Eye haemorrhage [Recovering/Resolving]
  - Ocular discomfort [Unknown]
  - Tooth injury [Unknown]
